FAERS Safety Report 5116797-1 (Version None)
Quarter: 2006Q3

REPORT INFORMATION
  Report Type: 
  Country: None (occurrence: None)
  Receive Date: 20060928
  Receipt Date: 20060920
  Transmission Date: 20061208
  Serious: Yes (Congenital Anomaly)
  Sender: FDA-Public Use
  Company Number: US-JNJFOC-20060904866

PATIENT

DRUGS (3)
  1. TOPAMAX [Suspect]
     Route: 064
  2. TOPAMAX [Suspect]
     Indication: DRUG EXPOSURE DURING PREGNANCY
     Route: 064
  3. KEPPRA [Concomitant]

REACTIONS (1)
  - FOETAL MALFORMATION [None]
